FAERS Safety Report 25499821 (Version 1)
Quarter: 2025Q3

REPORT INFORMATION
  Report Type: Spontaneous
  Country: US (occurrence: US)
  Receive Date: 20250701
  Receipt Date: 20250701
  Transmission Date: 20251021
  Serious: No
  Sender: BAYER HEALTHCARE PHARMACEUTICALS INC.
  Company Number: US-BAYER-2025A087056

PATIENT

DRUGS (1)
  1. GADAVIST [Suspect]
     Active Substance: GADOBUTROL
     Indication: Product used for unknown indication

REACTIONS (2)
  - Urticaria [Not Recovered/Not Resolved]
  - Periorbital swelling [Not Recovered/Not Resolved]
